FAERS Safety Report 8055631-7 (Version None)
Quarter: 2012Q1

REPORT INFORMATION
  Report Type: 
  Country: None (occurrence: None)
  Receive Date: 20120112
  Receipt Date: 20120104
  Transmission Date: 20120608
  Serious: Yes (Hospitalization)
  Sender: FDA-Public Use
  Company Number: IMP_05512_2012

PATIENT
  Age: 15 Year
  Sex: Male

DRUGS (1)
  1. BUPROPION HCL [Suspect]
     Indication: DEPRESSION
     Dosage: (150 MG QD)

REACTIONS (7)
  - SOCIAL AVOIDANT BEHAVIOUR [None]
  - HYPOPHAGIA [None]
  - MUTISM [None]
  - POOR PERSONAL HYGIENE [None]
  - CATATONIA [None]
  - PSYCHOTIC DISORDER [None]
  - SCHIZOPHRENIA [None]
